FAERS Safety Report 23984393 (Version 3)
Quarter: 2024Q4

REPORT INFORMATION
  Report Type: Spontaneous
  Country: JP (occurrence: JP)
  Receive Date: 20240618
  Receipt Date: 20241027
  Transmission Date: 20250114
  Serious: Yes (Other)
  Sender: JOHNSON AND JOHNSON
  Company Number: JP-JNJFOC-20240644259

PATIENT
  Age: 70 Year
  Sex: Female
  Weight: 59 kg

DRUGS (5)
  1. TREMFYA [Suspect]
     Active Substance: GUSELKUMAB
     Indication: Psoriatic arthropathy
     Dosage: DOSE UNKNOWN, DOSE INTERVAL: EVERY 4 TO 8 WEEKS
     Route: 058
     Dates: end: 2024
  2. TREMFYA [Suspect]
     Active Substance: GUSELKUMAB
  3. TREMFYA [Suspect]
     Active Substance: GUSELKUMAB
  4. IMURAN [Suspect]
     Active Substance: AZATHIOPRINE
     Dosage: DOSE UNKNOWN
     Route: 048
  5. PENTASA [Suspect]
     Active Substance: MESALAMINE
     Dosage: DOSE UNKNOWN
     Route: 065

REACTIONS (1)
  - Interstitial lung disease [Unknown]

NARRATIVE: CASE EVENT DATE: 20240529
